FAERS Safety Report 18654819 (Version 1)
Quarter: 2020Q4

REPORT INFORMATION
  Report Type: Spontaneous
  Country: US (occurrence: US)
  Receive Date: 20201223
  Receipt Date: 20201223
  Transmission Date: 20210114
  Serious: No
  Sender: FDA-Public Use
  Company Number: US-ALKEM LABORATORIES LIMITED-US-ALKEM-2020-00628

PATIENT
  Sex: Female

DRUGS (5)
  1. MEDROXYPROGESTERONE ACETATE. [Suspect]
     Active Substance: MEDROXYPROGESTERONE ACETATE
     Indication: CANCER IN REMISSION
     Dosage: 10 TO 40 MG, DAILY
     Route: 048
  2. PROMETRIUM [Suspect]
     Active Substance: PROGESTERONE
     Indication: CANCER IN REMISSION
     Dosage: 400 MILLIGRAM, QD
     Route: 048
  3. METFORMIN HYDROCHLORIDE. [Suspect]
     Active Substance: METFORMIN HYDROCHLORIDE
     Dosage: 500-1000 MG, DAILY
     Route: 065
  4. LNG-IUD [Suspect]
     Active Substance: LEVONORGESTREL
     Indication: CANCER IN REMISSION
     Dosage: 52 MG
     Route: 015
  5. MEGESTROL ACETATE. [Suspect]
     Active Substance: MEGESTROL ACETATE
     Indication: CANCER IN REMISSION
     Dosage: 80 TO 160 MG, DAILY
     Route: 048

REACTIONS (1)
  - Drug ineffective for unapproved indication [Unknown]
